FAERS Safety Report 21275344 (Version 1)
Quarter: 2022Q3

REPORT INFORMATION
  Report Type: Spontaneous
  Country: CN (occurrence: CN)
  Receive Date: 20220831
  Receipt Date: 20220831
  Transmission Date: 20221027
  Serious: Yes (Other)
  Sender: FDA-Public Use
  Company Number: CN-BAYER-2022A120782

PATIENT
  Age: 57 Year
  Sex: Male
  Weight: 55 kg

DRUGS (7)
  1. STIVARGA [Suspect]
     Active Substance: REGORAFENIB
     Indication: Hepatocellular carcinoma
     Dosage: 160 MG, QD
     Route: 048
     Dates: start: 20220621, end: 20220824
  2. STIVARGA [Suspect]
     Active Substance: REGORAFENIB
     Indication: Hepatocellular carcinoma
     Dosage: 80 MG, QD
     Route: 048
     Dates: start: 20220625, end: 20220628
  3. STIVARGA [Suspect]
     Active Substance: REGORAFENIB
     Indication: Hepatocellular carcinoma
     Dosage: 120 MG, QD
     Route: 048
     Dates: start: 20220629
  4. STIVARGA [Suspect]
     Active Substance: REGORAFENIB
     Indication: Hepatocellular carcinoma
     Dosage: 80 MG, QD
     Route: 048
     Dates: start: 20220719, end: 20220803
  5. TISLELIZUMAB [Concomitant]
     Active Substance: TISLELIZUMAB
     Indication: Hepatocellular carcinoma
     Dosage: UNK
     Dates: start: 20220316
  6. LENVATINIB [Concomitant]
     Active Substance: LENVATINIB
     Indication: Hepatocellular carcinoma
     Dosage: UNK
     Dates: start: 20220316
  7. FRUQUINTINIB [Concomitant]
     Active Substance: FRUQUINTINIB
     Indication: Hepatocellular carcinoma
     Dosage: UNK
     Dates: start: 20220608

REACTIONS (8)
  - Palmar-plantar erythrodysaesthesia syndrome [Recovering/Resolving]
  - Portal hypertension [None]
  - Splenomegaly [None]
  - Rash vesicular [Recovering/Resolving]
  - Erythema [Recovering/Resolving]
  - Peripheral swelling [Recovering/Resolving]
  - Pain in extremity [Recovering/Resolving]
  - Intentional product use issue [None]

NARRATIVE: CASE EVENT DATE: 20220623
